FAERS Safety Report 11233621 (Version 1)
Quarter: 2015Q2

REPORT INFORMATION
  Report Type: Spontaneous
  Country: US (occurrence: None)
  Receive Date: 20150630
  Receipt Date: 20150630
  Transmission Date: 20150821
  Serious: Yes (Death, Hospitalization)
  Sender: FDA-Public Use
  Company Number: INS201506-000264

PATIENT
  Age: 74 Year
  Sex: Male

DRUGS (14)
  1. DEXAMETHASONE. [Concomitant]
     Active Substance: DEXAMETHASONE
  2. SUBSYS [Suspect]
     Active Substance: FENTANYL
     Indication: CANCER PAIN
     Dosage: 600 MCG, 1 SPRAY AS DIRECTED, SUBLINGUAL
     Route: 060
     Dates: start: 20150210
  3. METHASONE HCL [Concomitant]
  4. CALCITRIOL. [Concomitant]
     Active Substance: CALCITRIOL
  5. ONDANSETRON HCL [Concomitant]
     Active Substance: ONDANSETRON HYDROCHLORIDE
  6. NEXIUM [Concomitant]
     Active Substance: ESOMEPRAZOLE MAGNESIUM
  7. FINASTERIDE. [Concomitant]
     Active Substance: FINASTERIDE
  8. FOLIC ACID. [Concomitant]
     Active Substance: FOLIC ACID
  9. MIRALAX (POLYETHLENE GLYCOL 3350) [Concomitant]
  10. SENNA PLUS (SENNOSIDES, DOCUSATE SODIUM) [Concomitant]
  11. OXYCODONE HCL [Concomitant]
     Active Substance: OXYCODONE HYDROCHLORIDE
  12. AMLODIPINE BESYLATE. [Concomitant]
     Active Substance: AMLODIPINE BESYLATE
  13. MARINOL [Concomitant]
     Active Substance: DRONABINOL
  14. METOCLOPRAMIDE HCL [Concomitant]
     Active Substance: METOCLOPRAMIDE HYDROCHLORIDE

REACTIONS (9)
  - Blood chloride decreased [None]
  - Aspartate aminotransferase increased [None]
  - Carbon dioxide increased [None]
  - Neutrophil percentage increased [None]
  - Lymphocyte count decreased [None]
  - Blood urea increased [None]
  - Neutrophil count increased [None]
  - Red cell distribution width increased [None]
  - Lymphocyte percentage decreased [None]

NARRATIVE: CASE EVENT DATE: 20150324
